FAERS Safety Report 5721714-7 (Version None)
Quarter: 2008Q2

REPORT INFORMATION
  Report Type: 
  Country: None (occurrence: None)
  Receive Date: 20080429
  Receipt Date: 20070502
  Transmission Date: 20081010
  Serious: No
  Sender: FDA-Public Use
  Company Number: US-ASTRAZENECA-2007UW09334

PATIENT
  Age: 17 Year
  Sex: Male

DRUGS (3)
  1. NEXIUM [Suspect]
     Indication: GASTRITIS EROSIVE
     Route: 048
     Dates: start: 20070426
  2. TENEX [Concomitant]
  3. STRATTERA [Concomitant]

REACTIONS (2)
  - CHEST PAIN [None]
  - TOURETTE'S DISORDER [None]
